FAERS Safety Report 15282215 (Version 1)
Quarter: 2018Q4

REPORT INFORMATION
  Report Type: Spontaneous
  Country: US (occurrence: US)
  Receive Date: 20180815
  Receipt Date: 20180815
  Transmission Date: 20190204
  Serious: No
  Sender: FDA-Public Use
  Company Number: US-BAUSCH-BL-2017-035626

PATIENT
  Age: 87 Year
  Sex: Male
  Weight: 67.65 kg

DRUGS (3)
  1. DORZOLAMIDE [Suspect]
     Active Substance: DORZOLAMIDE
     Indication: OPEN ANGLE GLAUCOMA
     Dosage: SOLUTION, BOTH EYES, PAST 12 YEARS
     Route: 047
     Dates: start: 2005
  2. XALATAN [Suspect]
     Active Substance: LATANOPROST
     Indication: OPEN ANGLE GLAUCOMA
     Dosage: BOTH EYES, AT BEDTIME, PAST 12 YEARS
     Route: 047
     Dates: start: 2005
  3. BRIMONIDINE TARTRATE OPHTHALMIC SOLUTION 0.025% [Suspect]
     Active Substance: BRIMONIDINE TARTRATE
     Indication: OPEN ANGLE GLAUCOMA
     Dosage: SOLUTION, BOTH EYES, PAST 12 YEARS
     Route: 047
     Dates: start: 2005

REACTIONS (1)
  - Eye discharge [Not Recovered/Not Resolved]

NARRATIVE: CASE EVENT DATE: 2017
